FAERS Safety Report 24246902 (Version 1)
Quarter: 2024Q3

REPORT INFORMATION
  Report Type: Spontaneous
  Country: CN (occurrence: CN)
  Receive Date: 20240826
  Receipt Date: 20240826
  Transmission Date: 20241016
  Serious: Yes (Hospitalization, Other)
  Sender: Haleon PLC
  Company Number: CN-HALEON-2193263

PATIENT
  Age: 53 Year
  Sex: Male
  Weight: 89.4 kg

DRUGS (1)
  1. IBUPROFEN [Suspect]
     Active Substance: IBUPROFEN
     Indication: Analgesic therapy
     Route: 048
     Dates: start: 20240811, end: 20240813

REACTIONS (7)
  - Gastric ulcer haemorrhage [Recovering/Resolving]
  - Haemoglobin decreased [Recovering/Resolving]
  - Shock haemorrhagic [Recovering/Resolving]
  - Dizziness [Recovering/Resolving]
  - Gastric ulcer [Recovering/Resolving]
  - Faeces discoloured [Recovering/Resolving]
  - Hyperhidrosis [Recovering/Resolving]

NARRATIVE: CASE EVENT DATE: 20240813
